FAERS Safety Report 10135792 (Version 3)
Quarter: 2014Q2

REPORT INFORMATION
  Report Type: Spontaneous
  Country: IT (occurrence: IT)
  Receive Date: 20140428
  Receipt Date: 20140521
  Transmission Date: 20141212
  Serious: Yes (Life-Threatening)
  Sender: FDA-Public Use
  Company Number: PHHY2014IT050226

PATIENT
  Age: 16 Year
  Sex: Female

DRUGS (1)
  1. EXJADE [Suspect]
     Indication: THALASSAEMIA BETA
     Dosage: 30 MG/KG (1000 MG), CYCLIC
     Route: 048
     Dates: start: 20120101, end: 20140417

REACTIONS (3)
  - Acidosis hyperchloraemic [Recovering/Resolving]
  - Fanconi syndrome acquired [Recovering/Resolving]
  - Hyperpyrexia [Recovering/Resolving]
